FAERS Safety Report 16977690 (Version 1)
Quarter: 2019Q4

REPORT INFORMATION
  Report Type: Spontaneous
  Country: US (occurrence: US)
  Receive Date: 20191031
  Receipt Date: 20191031
  Transmission Date: 20200122
  Serious: No
  Sender: FDA-Public Use
  Company Number: US-TEVA-2019-US-1129999

PATIENT

DRUGS (1)
  1. BUDESONIDE INHALATION SUSPENSION 0.5 MG/2ML TEVA [Suspect]
     Active Substance: BUDESONIDE
     Dosage: BUDESONIDE INHALATION SUSPENSION 0.5MG/2ML
     Route: 065

REACTIONS (2)
  - Product quality issue [Unknown]
  - Drug ineffective [Unknown]
